FAERS Safety Report 7489264-8 (Version None)
Quarter: 2011Q2

REPORT INFORMATION
  Report Type: 
  Country: None (occurrence: None)
  Receive Date: 20110518
  Receipt Date: 20110510
  Transmission Date: 20111010
  Serious: Yes (Hospitalization)
  Sender: FDA-Public Use
  Company Number: US-BAYER-2011-023952

PATIENT
  Age: 22 Year
  Sex: Female

DRUGS (1)
  1. CIPROFLOXACIN [Suspect]
     Indication: PYELONEPHRITIS
     Dosage: 500 MG, BID

REACTIONS (5)
  - DIPLOPIA [None]
  - HEADACHE [None]
  - EYE MOVEMENT DISORDER [None]
  - VISION BLURRED [None]
  - BENIGN INTRACRANIAL HYPERTENSION [None]
